FAERS Safety Report 5308448-8 (Version None)
Quarter: 2007Q2

REPORT INFORMATION
  Report Type: 
  Country: None (occurrence: None)
  Receive Date: 20070426
  Receipt Date: 20070416
  Transmission Date: 20071010
  Serious: Yes (Other)
  Sender: FDA-Public Use
  Company Number: BR-ROCHE-493562

PATIENT
  Sex: Female

DRUGS (2)
  1. ISOTRETINOIN [Suspect]
     Indication: ACNE
     Route: 048
     Dates: start: 20061215, end: 20070227
  2. ISOTRETINOIN [Suspect]
     Route: 048
     Dates: start: 20061121, end: 20061215

REACTIONS (2)
  - NO ADVERSE EFFECT [None]
  - PREGNANCY [None]
